FAERS Safety Report 7368814-6 (Version None)
Quarter: 2011Q1

REPORT INFORMATION
  Report Type: 
  Country: None (occurrence: None)
  Receive Date: 20110323
  Receipt Date: 20100914
  Transmission Date: 20110831
  Serious: Yes (Hospitalization)
  Sender: FDA-Public Use
  Company Number: US-BAYER-201030026NA

PATIENT
  Sex: Female
  Weight: 84.807 kg

DRUGS (7)
  1. YAZ [Suspect]
     Dosage: UNK
     Dates: start: 20050101, end: 20080101
  2. NAPROXEN [Concomitant]
  3. ROCEPHIN [Concomitant]
  4. FLAGYL [Concomitant]
  5. PREVACID [Concomitant]
  6. IBUPROFEN [Concomitant]
  7. ZOFRAN [Concomitant]

REACTIONS (2)
  - INJURY [None]
  - CHOLECYSTITIS CHRONIC [None]
